FAERS Safety Report 6269786-8 (Version None)
Quarter: 2009Q3

REPORT INFORMATION
  Report Type: 
  Country: None (occurrence: None)
  Receive Date: 20090714
  Receipt Date: 20090714
  Transmission Date: 20100115
  Serious: Yes (Hospitalization)
  Sender: FDA-Public Use
  Company Number: 54973

PATIENT
  Age: 6 Month
  Sex: Male
  Weight: 8.1647 kg

DRUGS (1)
  1. TEETHING TABLETS [Suspect]
     Dosage: 2 TABS DISSOLVED IN WTR

REACTIONS (2)
  - DYSPNOEA [None]
  - RESPIRATORY ARREST [None]
